FAERS Safety Report 10776131 (Version 1)
Quarter: 2015Q1

REPORT INFORMATION
  Report Type: Spontaneous
  Country: US (occurrence: None)
  Receive Date: 20150205
  Receipt Date: 20150205
  Transmission Date: 20150721
  Serious: Yes (Life-Threatening, Hospitalization)
  Sender: FDA-Public Use
  Company Number: None

PATIENT
  Age: 63 Year
  Sex: Male
  Weight: 111.13 kg

DRUGS (1)
  1. GANDOLINUIM [Suspect]
     Active Substance: GADOLINIUM

REACTIONS (7)
  - Eye swelling [None]
  - Swelling face [None]
  - Bradycardia [None]
  - Hypotension [None]
  - Erythema [None]
  - Peripheral swelling [None]
  - Anaphylactic reaction [None]

NARRATIVE: CASE EVENT DATE: 20150122
